FAERS Safety Report 14065773 (Version 1)
Quarter: 2017Q4

REPORT INFORMATION
  Report Type: Report from Study
  Country: US (occurrence: US)
  Receive Date: 20171009
  Receipt Date: 20171009
  Transmission Date: 20180321
  Serious: No
  Sender: FDA-Public Use
  Company Number: US-AMGEN-USASL2017070600

PATIENT
  Age: 63 Year
  Sex: Female
  Weight: 80 kg

DRUGS (13)
  1. VIACTIV [Concomitant]
     Active Substance: CALCIUM\VITAMIN D\VITAMIN K5
     Dosage: 5 DF, QD
  2. VITAMIN D3 [Concomitant]
     Active Substance: CHOLECALCIFEROL
     Dosage: 4000 IU, QD
     Route: 048
  3. LISINOPRIL. [Concomitant]
     Active Substance: LISINOPRIL
     Dosage: 20 MG, QD
     Route: 048
  4. IRON [Concomitant]
     Active Substance: IRON
     Dosage: 325 MG, QD
     Route: 048
  5. PROLIA [Suspect]
     Active Substance: DENOSUMAB
     Indication: VITAMIN D DEFICIENCY
  6. PROLIA [Suspect]
     Active Substance: DENOSUMAB
     Indication: HYPERPARATHYROIDISM SECONDARY
  7. HYDROCHLOROTHIAZIDE. [Concomitant]
     Active Substance: HYDROCHLOROTHIAZIDE
  8. CYANOCOBALAMIN. [Concomitant]
     Active Substance: CYANOCOBALAMIN
     Dosage: 5000 MUG, BID
     Route: 048
  9. CALCIUM CARBONATE. [Concomitant]
     Active Substance: CALCIUM CARBONATE
     Dosage: 500 MG, QD (5 TABLET)
     Route: 048
  10. PROLIA [Suspect]
     Active Substance: DENOSUMAB
     Indication: OSTEOPOROSIS
     Dosage: 60 MG, Q6MO
     Route: 058
  11. VITAMIN D [Concomitant]
     Active Substance: CHOLECALCIFEROL
  12. VITAMIN C [Concomitant]
     Active Substance: ASCORBIC ACID
     Dosage: 500 MG, UNK
     Route: 048
  13. OCUVITE [Concomitant]
     Active Substance: VITAMINS
     Route: 048

REACTIONS (2)
  - Off label use [Unknown]
  - Salivary hypersecretion [Recovered/Resolved]
